FAERS Safety Report 23510713 (Version 1)
Quarter: 2024Q1

REPORT INFORMATION
  Report Type: Spontaneous
  Country: US (occurrence: US)
  Receive Date: 20240211
  Receipt Date: 20240211
  Transmission Date: 20240410
  Serious: No
  Sender: FDA-Public Use
  Company Number: US-AIMMUNE THERAPEUTICS, INC.-2024AIMT00075

PATIENT

DRUGS (5)
  1. PALFORZIA [Suspect]
     Active Substance: PEANUT
     Indication: Food allergy
     Dosage: IDE (0.5MG-6MG),  ONCE
     Route: 048
     Dates: start: 20231219, end: 20231219
  2. PALFORZIA [Suspect]
     Active Substance: PEANUT
     Dosage: 3 MG, 1X/DAY
     Route: 048
     Dates: start: 20240102
  3. PALFORZIA [Suspect]
     Active Substance: PEANUT
     Dosage: 3 MG, ONCE, LAST DOSE PRIOR EVENT
     Route: 048
     Dates: start: 20240106, end: 20240106
  4. EPINEPHRINE [Concomitant]
     Active Substance: EPINEPHRINE
     Indication: Product used for unknown indication
  5. IBUPROFEN CT [Concomitant]
     Indication: Product used for unknown indication

REACTIONS (6)
  - Fatigue [Recovered/Resolved]
  - Rash [Recovered/Resolved]
  - Illness [Unknown]
  - Oropharyngeal pain [Unknown]
  - Malaise [Unknown]
  - Rhinorrhoea [Unknown]

NARRATIVE: CASE EVENT DATE: 20240106
